FAERS Safety Report 21032469 (Version 2)
Quarter: 2022Q3

REPORT INFORMATION
  Report Type: Other
  Country: JP (occurrence: JP)
  Receive Date: 20220701
  Receipt Date: 20220707
  Transmission Date: 20221027
  Serious: Yes (Other)
  Sender: FDA-Public Use
  Company Number: JP-CHUGAI-2022024539

PATIENT
  Age: 56 Year
  Sex: Male

DRUGS (1)
  1. ACTEMRA [Suspect]
     Active Substance: TOCILIZUMAB
     Indication: Castleman^s disease
     Dosage: UNK, ONCE/WEEK
     Route: 065

REACTIONS (4)
  - Intervertebral discitis [Recovering/Resolving]
  - Psoas abscess [Recovering/Resolving]
  - Mediastinal abscess [Recovering/Resolving]
  - Staphylococcal infection [Recovering/Resolving]
